FAERS Safety Report 7190131-8 (Version None)
Quarter: 2010Q4

REPORT INFORMATION
  Report Type: 
  Country: None (occurrence: None)
  Receive Date: 20101223
  Receipt Date: 20101216
  Transmission Date: 20110411
  Serious: Yes (Hospitalization)
  Sender: FDA-Public Use
  Company Number: GB-JNJFOC-20101206204

PATIENT
  Age: 32 Year
  Sex: Female
  Weight: 44 kg

DRUGS (2)
  1. PARACETAMOL [Suspect]
     Route: 048
  2. PARACETAMOL [Suspect]
     Indication: ALCOHOL WITHDRAWAL SYNDROME
     Route: 048

REACTIONS (1)
  - ACUTE HEPATIC FAILURE [None]
